FAERS Safety Report 14080565 (Version 2)
Quarter: 2017Q4

REPORT INFORMATION
  Report Type: Spontaneous
  Country: FR (occurrence: FR)
  Receive Date: 20171012
  Receipt Date: 20171129
  Transmission Date: 20180321
  Serious: Yes (Other)
  Sender: FDA-Public Use
  Company Number: FR-ASTRAZENECA-2017SF03000

PATIENT
  Sex: Female

DRUGS (2)
  1. OLAPARIB. [Suspect]
     Active Substance: OLAPARIB
     Dosage: FULL DOSAGE
     Route: 048
  2. OLAPARIB. [Suspect]
     Active Substance: OLAPARIB
     Dosage: FULL DOSAGE
     Route: 048

REACTIONS (2)
  - Disease progression [Recovered/Resolved]
  - Therapy cessation [Recovered/Resolved]
